FAERS Safety Report 10977840 (Version 1)
Quarter: 2015Q2

REPORT INFORMATION
  Report Type: Spontaneous
  Country: FI (occurrence: FI)
  Receive Date: 20150402
  Receipt Date: 20150402
  Transmission Date: 20150821
  Serious: Yes (Other)
  Sender: FDA-Public Use
  Company Number: FI-JNJFOC-20150319643

PATIENT
  Age: 29 Year
  Sex: Male

DRUGS (2)
  1. XARELTO [Suspect]
     Active Substance: RIVAROXABAN
     Indication: EMBOLISM VENOUS
     Route: 048
  2. XARELTO [Suspect]
     Active Substance: RIVAROXABAN
     Indication: PULMONARY EMBOLISM
     Route: 048

REACTIONS (5)
  - Drug ineffective [Unknown]
  - Thrombocytosis [Recovering/Resolving]
  - Leukocytosis [Recovering/Resolving]
  - Pulmonary embolism [Recovering/Resolving]
  - C-reactive protein increased [Recovering/Resolving]
